FAERS Safety Report 4672504-8 (Version None)
Quarter: 2005Q2

REPORT INFORMATION
  Report Type: 
  Country: None (occurrence: None)
  Receive Date: 20050524
  Receipt Date: 20050518
  Transmission Date: 20051028
  Serious: Yes (Hospitalization)
  Sender: FDA-Public Use
  Company Number: 200514479GDDC

PATIENT
  Age: 52 Year
  Sex: Female
  Weight: 92 kg

DRUGS (3)
  1. FLUDEX [Suspect]
     Indication: ESSENTIAL HYPERTENSION
     Route: 048
     Dates: start: 20050203, end: 20050227
  2. DETENSIEL [Concomitant]
     Dates: start: 20050203, end: 20050227
  3. TRIATEC [Concomitant]
     Dosage: DOSE: UNK
     Dates: end: 20050227

REACTIONS (1)
  - RENAL FAILURE ACUTE [None]
